FAERS Safety Report 8304607-0 (Version None)
Quarter: 2012Q2

REPORT INFORMATION
  Report Type: 
  Country: None (occurrence: None)
  Receive Date: 20120423
  Receipt Date: 20120410
  Transmission Date: 20120825
  Serious: Yes (Congenital Anomaly)
  Sender: FDA-Public Use
  Company Number: TR-JNJFOC-20120404760

PATIENT

DRUGS (2)
  1. OXCARBAZEPINE [Suspect]
     Indication: FOETAL EXPOSURE DURING PREGNANCY
     Route: 064
  2. TOPIRAMATE [Suspect]
     Indication: FOETAL EXPOSURE DURING PREGNANCY
     Route: 064

REACTIONS (10)
  - CLEFT LIP AND PALATE [None]
  - BLADDER DISORDER [None]
  - CONGENITAL ADRENAL GLAND HYPOPLASIA [None]
  - CARDIOMEGALY [None]
  - LIMB REDUCTION DEFECT [None]
  - GASTROINTESTINAL MALFORMATION [None]
  - CONGENITAL ANOMALY [None]
  - PERICARDIAL EFFUSION [None]
  - RENAL APLASIA [None]
  - RENAL HYPOPLASIA [None]
